FAERS Safety Report 6198184-0 (Version None)
Quarter: 2009Q2

REPORT INFORMATION
  Report Type: 
  Country: None (occurrence: None)
  Receive Date: 20090515
  Receipt Date: 20081002
  Transmission Date: 20091009
  Serious: Yes (Hospitalization)
  Sender: FDA-Public Use
  Company Number: APP200800943

PATIENT
  Age: 21 Year
  Sex: Male
  Weight: 98 kg

DRUGS (18)
  1. VANCOMYCIN HYDROCHLORIDE [Suspect]
     Indication: ABSCESS NECK
     Dosage: 1750 MG, 1 IN 8 HR, INTRAVENOUS
     Route: 042
     Dates: start: 20080527, end: 20080603
  2. VANCOMYCIN HYDROCHLORIDE [Suspect]
     Indication: CELLULITIS
     Dosage: 1750 MG, 1 IN 8 HR, INTRAVENOUS
     Route: 042
     Dates: start: 20080527, end: 20080603
  3. ZOSYN [Concomitant]
  4. CLINDAMYCIN HCL [Concomitant]
  5. ALPRAZOLAM [Concomitant]
  6. HEPARIN LOCK-FLUSH [Concomitant]
  7. LORAZEPAM [Concomitant]
  8. ZOLPIDEM [Concomitant]
  9. ACETAMINOPHEN-OXYCODONE (OXYCOCET) [Concomitant]
  10. ONDANSETRON HCL [Concomitant]
  11. PROCHLORPERAZINE MALEATE [Concomitant]
  12. ACETAMINOPHEN [Concomitant]
  13. MORPHINE [Concomitant]
  14. ENOXAPARIN SODIUM [Concomitant]
  15. DIAZEPAM [Concomitant]
  16. CEFAZOLIN [Concomitant]
  17. HEPARIN [Concomitant]
  18. SODIUM CHLORIDE 0.9% [Concomitant]

REACTIONS (1)
  - RENAL FAILURE ACUTE [None]
